FAERS Safety Report 16786106 (Version 1)
Quarter: 2019Q3

REPORT INFORMATION
  Report Type: Spontaneous
  Country: US (occurrence: US)
  Receive Date: 20190909
  Receipt Date: 20190909
  Transmission Date: 20191005
  Serious: Yes (Other)
  Sender: FDA-Public Use
  Company Number: US-AKORN PHARMACEUTICALS-2019AKN01892

PATIENT
  Age: 18 Year
  Sex: Male
  Weight: 72.7 kg

DRUGS (1)
  1. ISOTRETINOIN. [Suspect]
     Active Substance: ISOTRETINOIN
     Indication: ACNE
     Dosage: UNK ORAL, 1X/DAY (243 MG/KG TOTAL CUMULATIVE DOSE)
     Route: 048

REACTIONS (1)
  - Ingrowing nail [Recovered/Resolved]
